FAERS Safety Report 9354900 (Version 1)
Quarter: 2013Q2

REPORT INFORMATION
  Report Type: Spontaneous
  Country: US (occurrence: None)
  Receive Date: 20130618
  Receipt Date: 20130618
  Transmission Date: 20140414
  Serious: Yes (Life-Threatening, Hospitalization, Disabling)
  Sender: FDA-Public Use
  Company Number: None

PATIENT
  Age: 34 Year
  Sex: Male
  Weight: 74.84 kg

DRUGS (4)
  1. ESCITALOPRAM [Suspect]
     Indication: DEPRESSION
     Dosage: 1 AND A HALF PILLS
     Route: 048
     Dates: start: 20120701, end: 20130601
  2. ESCITALOPRAM [Suspect]
     Indication: POST-TRAUMATIC STRESS DISORDER
     Dosage: 1 AND A HALF PILLS
     Route: 048
     Dates: start: 20120701, end: 20130601
  3. MULTI [Concomitant]
  4. CALCIUM [Concomitant]

REACTIONS (19)
  - Dry mouth [None]
  - Dizziness [None]
  - Insomnia [None]
  - Asthenia [None]
  - Diarrhoea [None]
  - Sinus disorder [None]
  - Aggression [None]
  - Dyspepsia [None]
  - Hallucination [None]
  - Suicidal ideation [None]
  - Tinnitus [None]
  - Diplopia [None]
  - Somnolence [None]
  - Decreased appetite [None]
  - Pollakiuria [None]
  - Sluggishness [None]
  - Anger [None]
  - Depression [None]
  - Feeling abnormal [None]
